FAERS Safety Report 11435434 (Version 1)
Quarter: 2015Q3

REPORT INFORMATION
  Report Type: Spontaneous
  Country: US (occurrence: US)
  Receive Date: 20150831
  Receipt Date: 20150831
  Transmission Date: 20151125
  Serious: No
  Sender: FDA-Public Use
  Company Number: US-PFIZER INC-2015285170

PATIENT
  Age: 56 Year
  Sex: Female
  Weight: 55 kg

DRUGS (6)
  1. CHANTIX [Suspect]
     Active Substance: VARENICLINE TARTRATE
     Indication: SMOKING CESSATION THERAPY
     Dosage: STARTER PACK
     Dates: start: 201508
  2. PROAIR INHALER [Concomitant]
     Indication: ASTHMA
     Dosage: UNK
  3. MORPHINE SULFATE EXTENDED-RELEASE [Concomitant]
     Active Substance: MORPHINE SULFATE
     Indication: PAIN
     Dosage: 30 MG, 3X/DAY AS NEEDED
  4. SIMBICORT INHALER [Concomitant]
     Indication: CHRONIC OBSTRUCTIVE PULMONARY DISEASE
     Dosage: UNK
  5. SINGULAIR [Concomitant]
     Active Substance: MONTELUKAST SODIUM
     Dosage: UNK, 1X/DAY
  6. CLONAZEPAM. [Concomitant]
     Active Substance: CLONAZEPAM
     Dosage: 1 MG, 2X/DAY

REACTIONS (4)
  - Abdominal discomfort [Unknown]
  - Headache [Unknown]
  - Feeding disorder [Unknown]
  - Nausea [Unknown]
